FAERS Safety Report 4384008-0 (Version None)
Quarter: 2004Q2

REPORT INFORMATION
  Report Type: 
  Country: None (occurrence: None)
  Receive Date: 20040623
  Receipt Date: 20040623
  Transmission Date: 20050107
  Serious: Yes (Death, Life-Threatening, Hospitalization)
  Sender: FDA-Public Use
  Company Number: None

PATIENT
  Age: 40 Year
  Sex: Male
  Weight: 79.8331 kg

DRUGS (3)
  1. CIPROFLOXACIN [Suspect]
     Indication: EPIDIDYMITIS
     Dosage: CIPRO 500 MG BID X 10 DAYS
     Dates: start: 20030129, end: 20030208
  2. LEVAQUIN [Suspect]
     Indication: EPIDIDYMITIS
     Dosage: LEVOQUIN ? DOSAGE ONE PILL ONLY
     Dates: start: 20030208
  3. .. [Concomitant]

REACTIONS (11)
  - BLINDNESS [None]
  - CIRCULATORY COLLAPSE [None]
  - COAGULOPATHY [None]
  - FAECAL INCONTINENCE [None]
  - FEELING ABNORMAL [None]
  - HAEMORRHAGE [None]
  - HEART RATE INCREASED [None]
  - IMPAIRED WORK ABILITY [None]
  - NAUSEA [None]
  - TOXIC EPIDERMAL NECROLYSIS [None]
  - URINARY INCONTINENCE [None]
